FAERS Safety Report 10593081 (Version 1)
Quarter: 2014Q4

REPORT INFORMATION
  Report Type: Spontaneous
  Country: US (occurrence: None)
  Receive Date: 20141118
  Receipt Date: 20141118
  Transmission Date: 20150529
  Serious: Yes (Life-Threatening, Hospitalization)
  Sender: FDA-Public Use
  Company Number: None

PATIENT
  Age: 42 Year
  Sex: Female
  Weight: 55.34 kg

DRUGS (1)
  1. ARMOUR THYROID [Suspect]
     Active Substance: THYROID, PORCINE\THYROID, UNSPECIFIED
     Indication: AUTOIMMUNE THYROIDITIS
     Dosage: 1 ONCE DAILY TAKEN BY MOUTH
     Route: 048
     Dates: start: 20140516, end: 20140620

REACTIONS (6)
  - Nausea [None]
  - Jaundice [None]
  - Hepatitis cholestatic [None]
  - Product quality issue [None]
  - Hepatic enzyme increased [None]
  - Fatigue [None]

NARRATIVE: CASE EVENT DATE: 20140626
